FAERS Safety Report 12689513 (Version 1)
Quarter: 2016Q3

REPORT INFORMATION
  Report Type: Spontaneous
  Country: US (occurrence: None)
  Receive Date: 20160826
  Receipt Date: 20160826
  Transmission Date: 20161109
  Serious: Yes (Hospitalization)
  Sender: FDA-Public Use
  Company Number: None

PATIENT
  Age: 65 Year
  Sex: Female
  Weight: 63.5 kg

DRUGS (1)
  1. GAMMAGARD [Suspect]
     Active Substance: HUMAN IMMUNOGLOBULIN G
     Indication: POLYMYOSITIS
     Route: 042
     Dates: start: 20140218

REACTIONS (4)
  - Wrong technique in product usage process [None]
  - Incorrect drug administration rate [None]
  - Dementia Alzheimer^s type [None]
  - Tremor [None]

NARRATIVE: CASE EVENT DATE: 20140218
